FAERS Safety Report 24560776 (Version 1)
Quarter: 2024Q4

REPORT INFORMATION
  Report Type: Spontaneous
  Country: US (occurrence: US)
  Receive Date: 20241029
  Receipt Date: 20241029
  Transmission Date: 20250114
  Serious: Yes (Life-Threatening, Hospitalization)
  Sender: MYLAN
  Company Number: US-MYLANLABS-2024M1097212

PATIENT
  Age: 63 Year
  Sex: Male

DRUGS (4)
  1. DOXYCYCLINE [Suspect]
     Active Substance: DOXYCYCLINE
     Indication: Non-small cell lung cancer metastatic
     Dosage: UNK
     Route: 065
  2. PEMBROLIZUMAB [Suspect]
     Active Substance: PEMBROLIZUMAB
     Indication: Non-small cell lung cancer metastatic
     Dosage: UNK, CYCLE {COMPLETED 3 CYCLES OF PEMBROLIZUMAB, PEMETREXED, AND CARBOPLATIN OVER 7 WEEKS}
     Route: 065
  3. PEMETREXED [Concomitant]
     Active Substance: PEMETREXED
     Indication: Non-small cell lung cancer metastatic
     Dosage: UNK, CYCLE {COMPLETED 3 CYCLES OF PEMBROLIZUMAB, PEMETREXED, AND CARBOPLATIN OVER 7 WEEKS}
     Route: 065
  4. CARBOPLATIN [Concomitant]
     Active Substance: CARBOPLATIN
     Indication: Non-small cell lung cancer metastatic
     Dosage: UNK, CYCLE {COMPLETED 3 CYCLES OF PEMBROLIZUMAB, PEMETREXED, AND CARBOPLATIN OVER 7 WEEKS}
     Route: 065

REACTIONS (2)
  - Toxic epidermal necrolysis [Recovered/Resolved]
  - Off label use [Unknown]
